FAERS Safety Report 9157097 (Version 5)
Quarter: 2013Q3

REPORT INFORMATION
  Report Type: Spontaneous
  Country: IT (occurrence: IT)
  Receive Date: 20130312
  Receipt Date: 20130920
  Transmission Date: 20140515
  Serious: Yes (Other)
  Sender: FDA-Public Use
  Company Number: IT-JNJFOC-20130301818

PATIENT
  Age: 34 Year
  Sex: Female
  Weight: 80 kg

DRUGS (48)
  1. TOPAMAX [Suspect]
     Indication: MIGRAINE
     Route: 048
     Dates: start: 20120801
  2. TOPAMAX [Suspect]
     Indication: MIGRAINE
     Route: 048
     Dates: start: 20130303, end: 20130303
  3. TOPAMAX [Suspect]
     Indication: MIGRAINE
     Route: 048
     Dates: end: 20130328
  4. TOPAMAX [Suspect]
     Indication: MULTIPLE SCLEROSIS
     Route: 048
     Dates: start: 20120801
  5. TOPAMAX [Suspect]
     Indication: MULTIPLE SCLEROSIS
     Route: 048
     Dates: start: 20130303, end: 20130303
  6. TOPAMAX [Suspect]
     Indication: MULTIPLE SCLEROSIS
     Route: 048
     Dates: end: 20130328
  7. VALDOXAN (AGOMELATINE) [Suspect]
     Indication: MIGRAINE
     Route: 048
     Dates: start: 20130303, end: 20130303
  8. VALDOXAN (AGOMELATINE) [Suspect]
     Indication: MIGRAINE
     Route: 048
     Dates: end: 20130328
  9. VALDOXAN (AGOMELATINE) [Suspect]
     Indication: MIGRAINE
     Route: 048
     Dates: start: 20130101
  10. VALDOXAN (AGOMELATINE) [Suspect]
     Indication: MULTIPLE SCLEROSIS
     Route: 048
     Dates: start: 20130101
  11. VALDOXAN (AGOMELATINE) [Suspect]
     Indication: MULTIPLE SCLEROSIS
     Route: 048
     Dates: end: 20130328
  12. VALDOXAN (AGOMELATINE) [Suspect]
     Indication: MULTIPLE SCLEROSIS
     Route: 048
     Dates: start: 20130303, end: 20130303
  13. INDERAL [Suspect]
     Indication: MIGRAINE
     Route: 048
     Dates: start: 20130303, end: 20130303
  14. INDERAL [Suspect]
     Indication: MIGRAINE
     Route: 048
     Dates: start: 20130101
  15. INDERAL [Suspect]
     Indication: MIGRAINE
     Route: 048
     Dates: end: 20130328
  16. INDERAL [Suspect]
     Indication: MULTIPLE SCLEROSIS
     Route: 048
     Dates: end: 20130328
  17. INDERAL [Suspect]
     Indication: MULTIPLE SCLEROSIS
     Route: 048
     Dates: start: 20130101
  18. INDERAL [Suspect]
     Indication: MULTIPLE SCLEROSIS
     Route: 048
     Dates: start: 20130303, end: 20130303
  19. LYRICA [Suspect]
     Indication: MIGRAINE
     Route: 048
     Dates: start: 20130303, end: 20130303
  20. LYRICA [Suspect]
     Indication: MIGRAINE
     Route: 048
     Dates: start: 20130101
  21. LYRICA [Suspect]
     Indication: MIGRAINE
     Route: 048
     Dates: end: 20130328
  22. LYRICA [Suspect]
     Indication: MULTIPLE SCLEROSIS
     Route: 048
     Dates: start: 20130101
  23. LYRICA [Suspect]
     Indication: MULTIPLE SCLEROSIS
     Route: 048
     Dates: end: 20130328
  24. LYRICA [Suspect]
     Indication: MULTIPLE SCLEROSIS
     Route: 048
     Dates: start: 20130303, end: 20130303
  25. PRAZENE [Suspect]
     Indication: MIGRAINE
     Route: 048
     Dates: end: 20130328
  26. PRAZENE [Suspect]
     Indication: MIGRAINE
     Route: 048
     Dates: start: 20130101
  27. PRAZENE [Suspect]
     Indication: MIGRAINE
     Route: 048
     Dates: start: 20130303, end: 20130303
  28. PRAZENE [Suspect]
     Indication: MULTIPLE SCLEROSIS
     Route: 048
     Dates: end: 20130328
  29. PRAZENE [Suspect]
     Indication: MULTIPLE SCLEROSIS
     Route: 048
     Dates: start: 20130101
  30. PRAZENE [Suspect]
     Indication: MULTIPLE SCLEROSIS
     Route: 048
     Dates: start: 20130303, end: 20130303
  31. LAMICTAL [Suspect]
     Indication: MIGRAINE
     Route: 048
     Dates: end: 20130328
  32. LAMICTAL [Suspect]
     Indication: MIGRAINE
     Route: 048
     Dates: start: 20130101
  33. LAMICTAL [Suspect]
     Indication: MIGRAINE
     Route: 048
     Dates: start: 20130303, end: 20130303
  34. LAMICTAL [Suspect]
     Indication: MULTIPLE SCLEROSIS
     Route: 048
     Dates: end: 20130328
  35. LAMICTAL [Suspect]
     Indication: MULTIPLE SCLEROSIS
     Route: 048
     Dates: start: 20130303, end: 20130303
  36. LAMICTAL [Suspect]
     Indication: MULTIPLE SCLEROSIS
     Route: 048
     Dates: start: 20130101
  37. STILNOX [Suspect]
     Indication: MIGRAINE
     Dates: end: 20130328
  38. STILNOX [Suspect]
     Indication: MIGRAINE
     Dates: start: 20130101
  39. STILNOX [Suspect]
     Indication: MIGRAINE
     Dates: start: 20130303, end: 20130303
  40. STILNOX [Suspect]
     Indication: MULTIPLE SCLEROSIS
     Dates: start: 20130303, end: 20130303
  41. STILNOX [Suspect]
     Indication: MULTIPLE SCLEROSIS
     Dates: end: 20130328
  42. STILNOX [Suspect]
     Indication: MULTIPLE SCLEROSIS
     Dates: start: 20130101
  43. PROZAC [Suspect]
     Indication: MIGRAINE
     Route: 048
     Dates: end: 20130328
  44. PROZAC [Suspect]
     Indication: MIGRAINE
     Route: 048
     Dates: start: 20110101
  45. PROZAC [Suspect]
     Indication: MIGRAINE
     Route: 048
     Dates: start: 20130303, end: 20130303
  46. PROZAC [Suspect]
     Indication: MULTIPLE SCLEROSIS
     Route: 048
     Dates: start: 20110101
  47. PROZAC [Suspect]
     Indication: MULTIPLE SCLEROSIS
     Route: 048
     Dates: end: 20130328
  48. PROZAC [Suspect]
     Indication: MULTIPLE SCLEROSIS
     Route: 048
     Dates: start: 20130303, end: 20130303

REACTIONS (4)
  - Overdose [Unknown]
  - Toxicity to various agents [Recovering/Resolving]
  - Sluggishness [Unknown]
  - Off label use [Unknown]
